FAERS Safety Report 10180239 (Version 1)
Quarter: 2014Q2

REPORT INFORMATION
  Report Type: Spontaneous
  Country: US (occurrence: None)
  Receive Date: 20140425
  Receipt Date: 20140425
  Transmission Date: 20141212
  Serious: No
  Sender: FDA-Public Use
  Company Number: AP356-00368-SPO-US

PATIENT
  Sex: Female

DRUGS (7)
  1. BELVIQ (LORCASERIN HYDROCHLORIDE) [Suspect]
     Indication: WEIGHT DECREASED
     Route: 048
     Dates: start: 201312
  2. METFORMIN (METFORMIN) [Concomitant]
  3. VICTOZA (LIRAGLUTIDE) [Concomitant]
  4. LANTUS (INSULIN GLARGINE) [Concomitant]
  5. LEXAPRO (ESCITALOPRAM OXALATE) [Concomitant]
  6. DIOVAN (VALSARTAN) [Concomitant]
  7. BYSTOLIC (NEBIVOLOL HYDROCHLORIDE) [Concomitant]

REACTIONS (3)
  - Gastrooesophageal reflux disease [None]
  - Abdominal distension [None]
  - Flatulence [None]
